FAERS Safety Report 7116270-5 (Version None)
Quarter: 2010Q4

REPORT INFORMATION
  Report Type: 
  Country: None (occurrence: None)
  Receive Date: 20101115
  Receipt Date: 20101101
  Transmission Date: 20110411
  Serious: Yes (Hospitalization)
  Sender: FDA-Public Use
  Company Number: JPI-P-012854

PATIENT
  Age: 39 Year
  Sex: Female

DRUGS (4)
  1. XYREM [Suspect]
     Indication: SLEEP DISORDER
     Dosage: 4.5 GM (2.25 GM,2 IN 1 D),ORAL, (TITRATING DOSE),ORAL, 7.5 GM (3.75 GM,2 IN 1 ),ORAL
     Route: 048
     Dates: start: 20100101, end: 20100101
  2. XYREM [Suspect]
     Indication: SLEEP DISORDER
     Dosage: 4.5 GM (2.25 GM,2 IN 1 D),ORAL, (TITRATING DOSE),ORAL, 7.5 GM (3.75 GM,2 IN 1 ),ORAL
     Route: 048
     Dates: start: 20100101
  3. XYREM [Suspect]
     Indication: SLEEP DISORDER
     Dosage: 4.5 GM (2.25 GM,2 IN 1 D),ORAL, (TITRATING DOSE),ORAL, 7.5 GM (3.75 GM,2 IN 1 ),ORAL
     Route: 048
     Dates: start: 20100329
  4. UNSPECIFIED CONCOMITANT  MEDICATIONS [Concomitant]

REACTIONS (1)
  - MENTAL DISORDER [None]
